FAERS Safety Report 5520346-3 (Version None)
Quarter: 2007Q4

REPORT INFORMATION
  Report Type: 
  Country: None (occurrence: None)
  Receive Date: 20071116
  Receipt Date: 20071116
  Transmission Date: 20080405
  Serious: Yes (Other)
  Sender: FDA-Public Use
  Company Number: None

PATIENT
  Sex: Female

DRUGS (2)
  1. FOSAMAX [Suspect]
     Dosage: 70 MG QWK LAST 3 YEARS ORAL : 1999 10 MG A DAY FOR 5 YEARS
     Route: 048
     Dates: start: 19990101, end: 20070301
  2. FOSAMAX [Suspect]
     Dosage: 70 MG QWK LAST 3 YEARS ORAL : 1999 10 MG A DAY FOR 5 YEARS
     Route: 048
     Dates: start: 19991201, end: 20070701

REACTIONS (4)
  - ARTICULAR DISC DISORDER [None]
  - JOINT DISLOCATION [None]
  - TEMPOROMANDIBULAR JOINT SYNDROME [None]
  - TINNITUS [None]
